FAERS Safety Report 16412588 (Version 1)
Quarter: 2019Q2

REPORT INFORMATION
  Report Type: Spontaneous
  Country: US (occurrence: US)
  Receive Date: 20190610
  Receipt Date: 20190610
  Transmission Date: 20190711
  Serious: No
  Sender: FDA-Public Use
  Company Number: US-TEVA-2019-US-1059854

PATIENT
  Sex: Female

DRUGS (2)
  1. ESTRADIOL TABLETS TEVA [Suspect]
     Active Substance: ESTRADIOL
     Indication: HORMONE REPLACEMENT THERAPY
     Dates: start: 20190529
  2. ESTRADIOL TABLETS TEVA [Suspect]
     Active Substance: ESTRADIOL
     Dates: start: 2009, end: 20190520

REACTIONS (2)
  - Pruritus [Unknown]
  - Rash [Unknown]

NARRATIVE: CASE EVENT DATE: 20190530
